FAERS Safety Report 11389612 (Version 5)
Quarter: 2015Q4

REPORT INFORMATION
  Report Type: Report from Study
  Country: GB (occurrence: GB)
  Receive Date: 20150817
  Receipt Date: 20151015
  Transmission Date: 20160304
  Serious: Yes (Death, Life-Threatening, Hospitalization, Other)
  Sender: FDA-Public Use
  Company Number: GB-ABBVIE-15P-167-1444798-00

PATIENT
  Age: 72 Year
  Sex: Male

DRUGS (1)
  1. DUODOPA [Suspect]
     Active Substance: CARBIDOPA\LEVODOPA
     Indication: PRODUCT USED FOR UNKNOWN INDICATION
     Dosage: 5.3 MLS/HR
     Route: 050
     Dates: start: 20090526, end: 20150801

REACTIONS (9)
  - Diverticulitis [Fatal]
  - Lower gastrointestinal haemorrhage [Fatal]
  - Sepsis [Fatal]
  - Upper limb fracture [Unknown]
  - Atrial fibrillation [Unknown]
  - Joint dislocation [Not Recovered/Not Resolved]
  - General physical health deterioration [Unknown]
  - Fall [Recovered/Resolved]
  - Cerebrovascular accident [Unknown]

NARRATIVE: CASE EVENT DATE: 2014
